FAERS Safety Report 9981774 (Version 1)
Quarter: 2014Q1

REPORT INFORMATION
  Report Type: Spontaneous
  Country: US (occurrence: None)
  Receive Date: 20140127
  Receipt Date: 20140127
  Transmission Date: 20141002
  Serious: Yes (Other)
  Sender: FDA-Public Use
  Company Number: 1195037

PATIENT
  Age: 64 Year
  Sex: Male
  Weight: 99.32 kg

DRUGS (14)
  1. RITUXAN (RITUXIMAB) [Suspect]
     Indication: B-CELL LYMPHOMA
     Dosage: FREQUENCY CYCLIC, DAY 1, 8, 15 AND 22 (800 MG), INTRAVENOUS (NOT OTHERWISE SPECIFIED)
     Route: 042
     Dates: start: 20130102
  2. VELCADE (BORTEZOMIB) [Suspect]
     Indication: B-CELL LYMPHOMA
     Dosage: FREQUENCY CYCLIC (3.5 MG), SUBCUTANEOUS
     Route: 058
     Dates: start: 20130102, end: 20130109
  3. BENDAMUSTINE (BENDAMUSTINE) (BENDAMUSTINE) [Suspect]
     Indication: B-CELL LYMPHOMA
     Dosage: FREQUENCY CYCLIC, DAY 1 AND 2 OF EACH 35 DAYS (197 MG), INTRAVENOUS (NOT OTHERWISE SPECIFIED)
     Route: 042
     Dates: start: 20130102
  4. ACYCLOVIR (ACICLOVIR) (ACICLOVIR) [Concomitant]
  5. OMEPRAZOLE (OMEPRAZOLE) [Concomitant]
  6. DITROPAN (OXYBUTYNIN HYDROCHLORIDE) [Concomitant]
  7. SINEMET (CARBIDOPA, LEVODOPA) [Concomitant]
  8. COREG (CARVEDILOL) [Concomitant]
  9. PRASUGREL (PRASUGREL HYDROCHLORIDE) [Concomitant]
  10. ASPIRIN (ASPIRIN) [Concomitant]
  11. AMLODIPINE (AMLODIPINE) [Concomitant]
  12. LOVASTATIN (LOVASTATIN) [Concomitant]
  13. TEMAZEPAM (TEMAZEPAM) [Concomitant]
  14. GLYCERYL TRINITRATE (NITROGLYCERIN) [Concomitant]

REACTIONS (5)
  - Pneumonia [None]
  - Injection site inflammation [None]
  - Injection site pruritus [None]
  - Injection site pain [None]
  - Injection site erythema [None]
